FAERS Safety Report 9045682 (Version 1)
Quarter: 2013Q1

REPORT INFORMATION
  Report Type: Report from Study
  Country: US (occurrence: US)
  Receive Date: 20130131
  Receipt Date: 20130131
  Transmission Date: 20140127
  Serious: No
  Sender: FDA-Public Use
  Company Number: US-ABBOTT-12P-163-1009061-00

PATIENT
  Sex: Female
  Weight: 82.17 kg

DRUGS (4)
  1. HUMIRA [Suspect]
     Indication: RHEUMATOID ARTHRITIS
     Dates: start: 201101, end: 201111
  2. HUMIRA [Suspect]
     Dates: start: 201111, end: 201209
  3. HUMIRA [Suspect]
     Dates: start: 201210
  4. SULFASALAZINE [Concomitant]
     Indication: PRODUCT USED FOR UNKNOWN INDICATION

REACTIONS (3)
  - Abdominal discomfort [Recovered/Resolved]
  - Diarrhoea [Recovered/Resolved]
  - Arthralgia [Not Recovered/Not Resolved]
